FAERS Safety Report 6154698-0 (Version None)
Quarter: 2009Q2

REPORT INFORMATION
  Report Type: 
  Country: None (occurrence: None)
  Receive Date: 20090414
  Receipt Date: 20090408
  Transmission Date: 20091009
  Serious: Yes (Life-Threatening, Hospitalization, Other)
  Sender: FDA-Public Use
  Company Number: A0777587A

PATIENT
  Sex: Male
  Weight: 3.9 kg

DRUGS (7)
  1. WELLBUTRIN XL [Suspect]
     Indication: DEPRESSION
     Dosage: 150MG PER DAY
     Dates: start: 20090305
  2. VALTREX [Suspect]
     Indication: GENITAL HERPES
     Dosage: 500MG PER DAY
  3. VITAMIN TAB [Concomitant]
  4. NEXIUM [Concomitant]
  5. IRON SUPPLEMENT [Concomitant]
  6. LORCET-HD [Concomitant]
  7. RHINOCORT [Concomitant]

REACTIONS (5)
  - CONVULSION [None]
  - CRYING [None]
  - DRUG EXPOSURE DURING PREGNANCY [None]
  - DYSKINESIA [None]
  - MECONIUM ABNORMAL [None]
